FAERS Safety Report 19998897 (Version 5)
Quarter: 2023Q2

REPORT INFORMATION
  Report Type: Spontaneous
  Country: US (occurrence: US)
  Receive Date: 20211027
  Receipt Date: 20230510
  Transmission Date: 20230722
  Serious: No
  Sender: FDA-Public Use
  Company Number: US-BLUEPRINT MEDICINES CORPORATION-SP-US-2021-001934

PATIENT
  Age: 61 Year
  Sex: Female

DRUGS (4)
  1. AYVAKIT [Suspect]
     Active Substance: AVAPRITINIB
     Indication: Systemic mastocytosis
     Route: 065
     Dates: start: 20160701
  2. AYVAKIT [Suspect]
     Active Substance: AVAPRITINIB
     Route: 065
     Dates: start: 20160701
  3. AYVAKIT [Suspect]
     Active Substance: AVAPRITINIB
     Dosage: ALTERNATING WITH 50MG EVERY OTHER DAY
     Route: 065
     Dates: start: 20210827
  4. AYVAKIT [Suspect]
     Active Substance: AVAPRITINIB
     Dosage: ALTERNATING WITH 25MG EVERY OTHER DAY
     Route: 065
     Dates: start: 20210827

REACTIONS (11)
  - Migraine [Recovered/Resolved]
  - Aphasia [Not Recovered/Not Resolved]
  - Visual impairment [Not Recovered/Not Resolved]
  - Intraocular pressure increased [Unknown]
  - Visual field defect [Unknown]
  - Ocular hyperaemia [Unknown]
  - Headache [Unknown]
  - Insomnia [Not Recovered/Not Resolved]
  - Product preparation issue [Unknown]
  - Product dose omission issue [Unknown]
  - Brain fog [Unknown]

NARRATIVE: CASE EVENT DATE: 20160708
